FAERS Safety Report 4523953-X (Version None)
Quarter: 2004Q4

REPORT INFORMATION
  Report Type: 
  Country: None (occurrence: None)
  Receive Date: 20041209
  Receipt Date: 20041130
  Transmission Date: 20050328
  Serious: Yes (Other)
  Sender: FDA-Public Use
  Company Number: 2004100800

PATIENT
  Age: 68 Year
  Sex: Female
  Weight: 62.5964 kg

DRUGS (6)
  1. LIPITOR [Suspect]
     Indication: BLOOD CHOLESTEROL INCREASED
     Dosage: 20 MG (10 MG, 2 IN 1 D), ORAL
     Route: 048
  2. GEMFIBROZIL [Suspect]
     Indication: BLOOD TRIGLYCERIDES INCREASED
     Dosage: 1200 MG (1 IN 1 D), UNKNOWN
     Dates: start: 20040101
  3. TOCOPHEROL CONCENTRATE CAP [Suspect]
     Indication: ILL-DEFINED DISORDER
     Dosage: ORAL
     Route: 048
     Dates: end: 20040101
  4. ATENOLOL [Concomitant]
  5. LOSARTAN POTASSIUM [Concomitant]
  6. OMEPRAZOLE [Concomitant]

REACTIONS (7)
  - ARTHRITIS [None]
  - BURNING SENSATION [None]
  - DRUG EFFECT DECREASED [None]
  - MYALGIA [None]
  - NUCLEAR MAGNETIC RESONANCE IMAGING ABNORMAL [None]
  - PAIN [None]
  - TENDON INJURY [None]
